FAERS Safety Report 7958395-8 (Version None)
Quarter: 2011Q4

REPORT INFORMATION
  Report Type: 
  Country: None (occurrence: None)
  Receive Date: 20111205
  Receipt Date: 20111129
  Transmission Date: 20120403
  Serious: Yes (Death, Life-Threatening, Hospitalization)
  Sender: FDA-Public Use
  Company Number: FR-MERCK-1106FRA00065

PATIENT
  Age: 64 Year
  Sex: Female
  Weight: 109 kg

DRUGS (2)
  1. ARIPIPRAZOLE [Concomitant]
     Route: 065
     Dates: start: 20080410
  2. JANUMET [Suspect]
     Indication: TYPE 2 DIABETES MELLITUS
     Route: 048
     Dates: start: 20100608

REACTIONS (2)
  - PULMONARY EMBOLISM [None]
  - UTERINE CANCER [None]
